FAERS Safety Report 9321118 (Version 2)
Quarter: 2013Q4

REPORT INFORMATION
  Report Type: Spontaneous
  Country: DK (occurrence: DK)
  Receive Date: 20130531
  Receipt Date: 20131204
  Transmission Date: 20140711
  Serious: Yes (Disabling, Other)
  Sender: FDA-Public Use
  Company Number: DK-ROCHE-1231074

PATIENT
  Age: 35 Year
  Sex: Female

DRUGS (1)
  1. XOLAIR [Suspect]
     Indication: URTICARIA
     Dosage: EVERY 8 WEEK
     Route: 065
     Dates: start: 20111130

REACTIONS (1)
  - Diabetes mellitus [Recovering/Resolving]
